FAERS Safety Report 16498825 (Version 1)
Quarter: 2019Q2

REPORT INFORMATION
  Report Type: Spontaneous
  Country: US (occurrence: US)
  Receive Date: 20190520
  Receipt Date: 20190520
  Transmission Date: 20190711
  Serious: Yes (Other)
  Sender: FDA-Public Use
  Company Number: None

PATIENT

DRUGS (1)
  1. ROPIVACAINE. [Suspect]
     Active Substance: ROPIVACAINE HYDROCHLORIDE
     Indication: NERVE BLOCK
     Dosage: ?          OTHER FREQUENCY:ONE TIME ;?
     Dates: start: 20190416

REACTIONS (2)
  - Delayed recovery from anaesthesia [None]
  - Fatigue [None]

NARRATIVE: CASE EVENT DATE: 20190416
